FAERS Safety Report 4652444-0 (Version None)
Quarter: 2005Q2

REPORT INFORMATION
  Report Type: 
  Country: None (occurrence: None)
  Receive Date: 20050504
  Receipt Date: 20050311
  Transmission Date: 20051028
  Serious: Yes (Hospitalization, Other)
  Sender: FDA-Public Use
  Company Number: PHBS2005BR03654

PATIENT
  Age: 64 Year
  Sex: Male

DRUGS (3)
  1. LESCOL XL [Suspect]
     Indication: DYSLIPIDAEMIA
     Dosage: 80 MG, QD
     Route: 048
  2. LESCOL XL [Suspect]
     Dates: start: 20040901
  3. APROVEL [Concomitant]
     Indication: HYPERTENSION
     Dosage: 150 MG, QD
     Route: 048

REACTIONS (7)
  - ABDOMINAL PAIN [None]
  - CHEST PAIN [None]
  - CHOLELITHIASIS [None]
  - GASTROINTESTINAL PAIN [None]
  - HEPATITIS A ANTIBODY POSITIVE [None]
  - JAUNDICE [None]
  - MYALGIA [None]
